FAERS Safety Report 9753813 (Version 1)
Quarter: 2013Q4

REPORT INFORMATION
  Report Type: Spontaneous
  Country: US (occurrence: None)
  Receive Date: 20131211
  Receipt Date: 20131211
  Transmission Date: 20140711
  Serious: Yes (Other)
  Sender: FDA-Public Use
  Company Number: CA13-0609

PATIENT
  Age: 56 Year
  Sex: Female
  Weight: 134 kg

DRUGS (3)
  1. ENOXAPARIN SODIUM [Suspect]
     Indication: THROMBOSIS
     Route: 058
     Dates: start: 20131108, end: 20131116
  2. HCTZ [Concomitant]
  3. ATENOLOL [Concomitant]

REACTIONS (5)
  - Injection site mass [None]
  - Injection site nodule [None]
  - Malabsorption from injection site [None]
  - Injection site pain [None]
  - Injection site swelling [None]
